FAERS Safety Report 10196608 (Version 2)
Quarter: 2014Q2

REPORT INFORMATION
  Report Type: Spontaneous
  Country: TR (occurrence: TR)
  Receive Date: 20140527
  Receipt Date: 20140530
  Transmission Date: 20141212
  Serious: Yes (Hospitalization)
  Sender: FDA-Public Use
  Company Number: TR-PFIZER INC-2014142251

PATIENT
  Age: 15 Year
  Sex: Female
  Weight: 81 kg

DRUGS (1)
  1. DOSTINEX [Suspect]
     Indication: PROLACTINOMA
     Dosage: 0.5 MG, 2X/WEEK
     Route: 048
     Dates: start: 20121106, end: 20121125

REACTIONS (1)
  - Haemolytic anaemia [Recovered/Resolved]
